FAERS Safety Report 22200398 (Version 2)
Quarter: 2023Q2

REPORT INFORMATION
  Report Type: Report from Study
  Country: AT (occurrence: None)
  Receive Date: 20230412
  Receipt Date: 20230530
  Transmission Date: 20230722
  Serious: Yes (Hospitalization)
  Sender: FDA-Public Use
  Company Number: AT-ROCHE-3325744

PATIENT
  Age: 74 Year
  Sex: Female

DRUGS (3)
  1. POLATUZUMAB VEDOTIN [Suspect]
     Active Substance: POLATUZUMAB VEDOTIN
     Indication: Diffuse large B-cell lymphoma
     Dosage: CYCLE 1 DAY 2
     Route: 042
     Dates: start: 20230328
  2. OBINUTUZUMAB [Suspect]
     Active Substance: OBINUTUZUMAB
     Indication: Diffuse large B-cell lymphoma
     Dosage: CYCLE 1 DAY 1
     Route: 042
     Dates: start: 20230327
  3. MEROPENEM [Concomitant]
     Active Substance: MEROPENEM
     Dates: start: 20230403

REACTIONS (1)
  - Urosepsis [Not Recovered/Not Resolved]

NARRATIVE: CASE EVENT DATE: 20230404
